FAERS Safety Report 20652764 (Version 1)
Quarter: 2022Q1

REPORT INFORMATION
  Report Type: Report from Study
  Country: CO (occurrence: CO)
  Receive Date: 20220330
  Receipt Date: 20220330
  Transmission Date: 20220424
  Serious: Yes (Hospitalization, Other)
  Sender: FDA-Public Use
  Company Number: CO-ASTELLAS-2022US011676

PATIENT
  Sex: Female
  Weight: 44 kg

DRUGS (1)
  1. TACROLIMUS [Suspect]
     Active Substance: TACROLIMUS
     Indication: Product used for unknown indication
     Route: 048
     Dates: start: 20211013

REACTIONS (4)
  - Secondary immunodeficiency [Unknown]
  - Bone marrow disorder [Unknown]
  - Vomiting [Unknown]
  - Epistaxis [Unknown]

NARRATIVE: CASE EVENT DATE: 20220104
